FAERS Safety Report 19299314 (Version 2)
Quarter: 2021Q2

REPORT INFORMATION
  Report Type: Spontaneous
  Country: US (occurrence: US)
  Receive Date: 20210524
  Receipt Date: 20210614
  Transmission Date: 20210717
  Serious: Yes (Hospitalization, Other)
  Sender: FDA-Public Use
  Company Number: US-ASTRAZENECA-2021A460144

PATIENT
  Sex: Male
  Weight: 102.1 kg

DRUGS (25)
  1. PRILOSEC OTC [Suspect]
     Active Substance: OMEPRAZOLE MAGNESIUM
     Route: 048
     Dates: start: 201104, end: 201702
  2. PREVACID 24 HR [Suspect]
     Active Substance: LANSOPRAZOLE
     Indication: GASTROOESOPHAGEAL REFLUX DISEASE
     Route: 065
     Dates: start: 201104, end: 201702
  3. FINASTERIDE. [Concomitant]
     Active Substance: FINASTERIDE
     Route: 065
  4. CLARITHROMYCIN. [Concomitant]
     Active Substance: CLARITHROMYCIN
     Route: 065
  5. TRAMADOL. [Concomitant]
     Active Substance: TRAMADOL
     Route: 065
  6. LIPITOR [Concomitant]
     Active Substance: ATORVASTATIN CALCIUM
     Route: 065
  7. NEXIUM [Suspect]
     Active Substance: ESOMEPRAZOLE MAGNESIUM
     Indication: PRODUCT USED FOR UNKNOWN INDICATION
     Dosage: 50.0MG UNKNOWN
     Route: 048
     Dates: start: 2012
  8. PRILOSEC [Suspect]
     Active Substance: OMEPRAZOLE MAGNESIUM
     Indication: GASTROOESOPHAGEAL REFLUX DISEASE
     Dosage: GEENRIC20.0MG UNKNOWN
     Route: 065
     Dates: start: 2011, end: 2019
  9. TAMSULOSIN [Concomitant]
     Active Substance: TAMSULOSIN
     Route: 065
  10. NEXIUM 24HR [Suspect]
     Active Substance: ESOMEPRAZOLE MAGNESIUM
     Route: 048
     Dates: start: 201104, end: 201702
  11. PREVACID [Suspect]
     Active Substance: LANSOPRAZOLE
     Route: 065
     Dates: start: 2016, end: 2019
  12. METHYLPREDNISOLONE. [Concomitant]
     Active Substance: METHYLPREDNISOLONE
     Route: 065
  13. OXYCODONE [Concomitant]
     Active Substance: OXYCODONE
     Route: 065
  14. CEPHALEXIN. [Concomitant]
     Active Substance: CEPHALEXIN
     Route: 065
  15. NEXIUM [Suspect]
     Active Substance: ESOMEPRAZOLE MAGNESIUM
     Indication: PRODUCT USED FOR UNKNOWN INDICATION
     Route: 048
     Dates: start: 201104, end: 201702
  16. PRILOSEC [Suspect]
     Active Substance: OMEPRAZOLE MAGNESIUM
     Indication: GASTROOESOPHAGEAL REFLUX DISEASE
     Route: 048
     Dates: start: 20151026, end: 20160531
  17. NEXIUM I.V. [Suspect]
     Active Substance: ESOMEPRAZOLE SODIUM
     Route: 042
     Dates: start: 201104, end: 201702
  18. PROTONIX [Suspect]
     Active Substance: PANTOPRAZOLE SODIUM
     Route: 065
     Dates: start: 2011
  19. PANTOPRAZOLE [Suspect]
     Active Substance: PANTOPRAZOLE
     Dosage: GENERIC40.0MG UNKNOWN
     Route: 065
     Dates: start: 2015, end: 2021
  20. PRILOSEC [Suspect]
     Active Substance: OMEPRAZOLE MAGNESIUM
     Indication: GASTROOESOPHAGEAL REFLUX DISEASE
     Dosage: 20.0MG UNKNOWN
     Route: 048
     Dates: start: 2004, end: 2017
  21. CYCLOBENZAPRINE. [Concomitant]
     Active Substance: CYCLOBENZAPRINE
     Route: 065
  22. CIPROFLOXACIN. [Concomitant]
     Active Substance: CIPROFLOXACIN
     Route: 065
  23. SERTRALINE [Concomitant]
     Active Substance: SERTRALINE HYDROCHLORIDE
     Route: 065
  24. PREVACID [Suspect]
     Active Substance: LANSOPRAZOLE
     Route: 065
     Dates: start: 201104, end: 201702
  25. MORPHINE [Concomitant]
     Active Substance: MORPHINE
     Route: 065

REACTIONS (25)
  - Renal cancer [Unknown]
  - Pyelonephritis [Unknown]
  - Renal disorder [Unknown]
  - Nephrogenic anaemia [Unknown]
  - Urinary retention [Unknown]
  - Renal infarct [Unknown]
  - Haematuria [Unknown]
  - Amnesia [Unknown]
  - Acute kidney injury [Unknown]
  - Obstructive nephropathy [Unknown]
  - Retroperitoneal haematoma [Unknown]
  - Renal atrophy [Unknown]
  - Gait disturbance [Unknown]
  - Nephrolithiasis [Unknown]
  - Renal colic [Unknown]
  - Hyperkalaemia [Unknown]
  - Chronic kidney disease [Unknown]
  - Renal impairment [Unknown]
  - Renal mass [Unknown]
  - Renal cyst [Unknown]
  - Confusional state [Unknown]
  - Renal failure [Unknown]
  - Hydronephrosis [Unknown]
  - Single functional kidney [Unknown]
  - Hyperparathyroidism secondary [Unknown]

NARRATIVE: CASE EVENT DATE: 20110418
